FAERS Safety Report 5552000-6 (Version None)
Quarter: 2007Q4

REPORT INFORMATION
  Report Type: 
  Country: None (occurrence: None)
  Receive Date: 20071212
  Receipt Date: 20071130
  Transmission Date: 20080405
  Serious: Yes (Hospitalization)
  Sender: FDA-Public Use
  Company Number: DE-PFIZER INC-2007102263

PATIENT
  Sex: Male
  Weight: 78 kg

DRUGS (6)
  1. CHAMPIX [Suspect]
     Indication: DRUG WITHDRAWAL SYNDROME
     Dosage: TEXT:1 TABLET
     Route: 048
  2. THEOPHYLLINE [Suspect]
     Indication: CHRONIC OBSTRUCTIVE PULMONARY DISEASE
     Route: 048
  3. CORTISONE ACETATE TAB [Concomitant]
  4. UNACID [Concomitant]
  5. TORSEMIDE [Concomitant]
  6. SPIRIVA [Concomitant]

REACTIONS (4)
  - ANTASTHMATIC DRUG LEVEL BELOW THERAPEUTIC [None]
  - CONFUSIONAL STATE [None]
  - CONVULSION [None]
  - DISTURBANCE IN ATTENTION [None]
